FAERS Safety Report 19707027 (Version 1)
Quarter: 2021Q3

REPORT INFORMATION
  Report Type: Spontaneous
  Country: DE (occurrence: DE)
  Receive Date: 20210817
  Receipt Date: 20210817
  Transmission Date: 20211014
  Serious: Yes (Hospitalization)
  Sender: FDA-Public Use
  Company Number: DE-009507513-2108DEU002811

PATIENT
  Age: 81 Year
  Sex: Male

DRUGS (4)
  1. PEMBROLIZUMAB. [Suspect]
     Active Substance: PEMBROLIZUMAB
     Dosage: 200 MG, ACCORDING TO THE SCHEME, INJECTION / INFUSION SOLUTION
     Route: 042
  2. DALTEPARIN [Concomitant]
     Active Substance: DALTEPARIN
     Dosage: 5000 IE, 0?0?1?0, PRE?FILLED SYRINGES
     Route: 058
  3. TAMSULOSIN [Concomitant]
     Active Substance: TAMSULOSIN
     Dosage: 0.4 MG, 1?0?0?0, EXTENDED?RELEASE TABLETS
     Route: 048
  4. RAMIPRIL. [Concomitant]
     Active Substance: RAMIPRIL
     Dosage: 5 MG, 1?0?0?0, TABLETS
     Route: 048

REACTIONS (6)
  - Hypotension [Unknown]
  - Pain [Unknown]
  - Nausea [Unknown]
  - General physical health deterioration [Unknown]
  - Fatigue [Unknown]
  - Decreased appetite [Unknown]
